FAERS Safety Report 16983858 (Version 1)
Quarter: 2019Q4

REPORT INFORMATION
  Report Type: Spontaneous
  Country: US (occurrence: US)
  Receive Date: 20191030
  Receipt Date: 20191030
  Transmission Date: 20200122
  Serious: Yes (Hospitalization)
  Sender: FDA-Public Use
  Company Number: None

PATIENT
  Age: 53 Year
  Sex: Female
  Weight: 137.25 kg

DRUGS (15)
  1. EXALGO [Concomitant]
     Active Substance: HYDROMORPHONE HYDROCHLORIDE
  2. BACLOFEN. [Concomitant]
     Active Substance: BACLOFEN
  3. THYROID HARMONE [Concomitant]
  4. CLOASE STOOL SOFTENER [Concomitant]
  5. GABAPENTIN. [Concomitant]
     Active Substance: GABAPENTIN
  6. BUSPIRONE [Concomitant]
     Active Substance: BUSPIRONE HYDROCHLORIDE
  7. ZOLOFT [Concomitant]
     Active Substance: SERTRALINE HYDROCHLORIDE
  8. VITAMIN D [Concomitant]
     Active Substance: VITAMIN D NOS
  9. ATENOLOL. [Concomitant]
     Active Substance: ATENOLOL
  10. FAMOTADINE [Concomitant]
  11. FLUTICASONE. [Concomitant]
     Active Substance: FLUTICASONE
  12. CRESTOR [Concomitant]
     Active Substance: ROSUVASTATIN CALCIUM
  13. MOVANTIK [Suspect]
     Active Substance: NALOXEGOL OXALATE
     Indication: CONSTIPATION
     Dosage: ?          QUANTITY:3 TABLET(S);?
     Route: 048
     Dates: start: 20191030, end: 20191030
  14. VITAMIN D [Concomitant]
     Active Substance: VITAMIN D NOS
  15. FIBER GUMMIES [Concomitant]

REACTIONS (8)
  - Hyperhidrosis [None]
  - Blood pressure increased [None]
  - Diarrhoea [None]
  - Anxiety [None]
  - Dyspnoea [None]
  - Heart rate increased [None]
  - Drug withdrawal syndrome [None]
  - Burning sensation [None]

NARRATIVE: CASE EVENT DATE: 20191030
